FAERS Safety Report 5189091-0 (Version None)
Quarter: 2006Q4

REPORT INFORMATION
  Report Type: 
  Country: None (occurrence: None)
  Receive Date: 20061218
  Receipt Date: 20061205
  Transmission Date: 20070319
  Serious: Yes (Hospitalization)
  Sender: FDA-Public Use
  Company Number: 237984K06USA

PATIENT

DRUGS (1)
  1. REBIF [Suspect]
     Indication: MULTIPLE SCLEROSIS
     Dosage: NOT REPORTED, NOT REPORTED, NOT REPORTED

REACTIONS (1)
  - HOSPITALISATION [None]
